FAERS Safety Report 9556615 (Version 1)
Quarter: 2013Q3

REPORT INFORMATION
  Report Type: Spontaneous
  Country: CN (occurrence: None)
  Receive Date: 20130924
  Receipt Date: 20130924
  Transmission Date: 20140515
  Serious: Yes (Life-Threatening)
  Sender: FDA-Public Use
  Company Number: B0924047A

PATIENT
  Age: 37 Year
  Sex: Male

DRUGS (1)
  1. EPIVIR-HBV [Suspect]
     Indication: CHRONIC HEPATITIS B

REACTIONS (10)
  - Hepatic failure [None]
  - Decreased appetite [None]
  - Fatigue [None]
  - Encephalopathy [None]
  - Coma [None]
  - Brain oedema [None]
  - Brain herniation [None]
  - Liver transplant [None]
  - Hepatic necrosis [None]
  - Cholestasis [None]
